FAERS Safety Report 9962996 (Version 1)
Quarter: 2014Q1

REPORT INFORMATION
  Report Type: Spontaneous
  Country: NL (occurrence: NL)
  Receive Date: 20140305
  Receipt Date: 20140305
  Transmission Date: 20141002
  Serious: Yes (Other)
  Sender: FDA-Public Use
  Company Number: NL-ACTAVIS-2014-03452

PATIENT
  Age: 64 Year
  Sex: Male
  Weight: 74 kg

DRUGS (1)
  1. PANTOPRAZOL [Suspect]
     Indication: DYSPEPSIA
     Dosage: 40 MG, DAILY;1 KEER PER DAG 1 STUK(S)(1 TIME PER DAY 1 PIECE (S))
     Route: 048
     Dates: start: 20140205, end: 20140208

REACTIONS (7)
  - Suicidal ideation [Recovering/Resolving]
  - Panic attack [Recovering/Resolving]
  - Depression [Recovering/Resolving]
  - Chest pain [Recovering/Resolving]
  - Anxiety [Recovering/Resolving]
  - Thinking abnormal [Recovering/Resolving]
  - Epistaxis [Recovering/Resolving]
